FAERS Safety Report 11202129 (Version 1)
Quarter: 2015Q2

REPORT INFORMATION
  Report Type: Spontaneous
  Country: JP (occurrence: JP)
  Receive Date: 20150619
  Receipt Date: 20150619
  Transmission Date: 20150821
  Serious: Yes (Death, Other)
  Sender: FDA-Public Use
  Company Number: JP-BRISTOL-MYERS SQUIBB COMPANY-BMS-2015-021429

PATIENT
  Age: 88 Year
  Sex: Male
  Weight: 40 kg

DRUGS (3)
  1. ZOSYN [Suspect]
     Active Substance: PIPERACILLIN SODIUM\TAZOBACTAM SODIUM
     Indication: PNEUMONIA ASPIRATION
     Dosage: 4.5 MG, TID
     Route: 041
     Dates: start: 20150323, end: 20150327
  2. ELIQUIS [Suspect]
     Active Substance: APIXABAN
     Indication: CEREBROVASCULAR ACCIDENT PROPHYLAXIS
     Dosage: 2.5 MG, BID
     Route: 048
     Dates: start: 20140928, end: 20150327
  3. TAKEPRON [Concomitant]
     Active Substance: LANSOPRAZOLE
     Indication: GASTROOESOPHAGEAL REFLUX DISEASE
     Dosage: 15 MG, QD
     Route: 048
     Dates: end: 20150527

REACTIONS (3)
  - Cerebral infarction [Fatal]
  - Haematuria [Not Recovered/Not Resolved]
  - Pneumonia aspiration [Unknown]

NARRATIVE: CASE EVENT DATE: 20150212
